FAERS Safety Report 19699434 (Version 1)
Quarter: 2021Q3

REPORT INFORMATION
  Report Type: Spontaneous
  Country: US (occurrence: US)
  Receive Date: 20210813
  Receipt Date: 20210813
  Transmission Date: 20211014
  Serious: Yes (Other)
  Sender: FDA-Public Use
  Company Number: US-LANNETT COMPANY, INC.-US-2021LAN000287

PATIENT
  Age: 92 Year
  Sex: Male

DRUGS (2)
  1. PANTOPRAZOLE SODIUM. [Suspect]
     Active Substance: PANTOPRAZOLE SODIUM
     Indication: PROPHYLAXIS
  2. PANTOPRAZOLE SODIUM. [Suspect]
     Active Substance: PANTOPRAZOLE SODIUM
     Indication: OESOPHAGEAL DISORDER
     Dosage: 40 MG, QD
     Route: 048
     Dates: start: 2018

REACTIONS (4)
  - Oliguria [Unknown]
  - Arthropathy [Unknown]
  - Transient ischaemic attack [Recovered/Resolved]
  - Rheumatic disorder [Unknown]

NARRATIVE: CASE EVENT DATE: 2021
